FAERS Safety Report 24662320 (Version 3)
Quarter: 2024Q4

REPORT INFORMATION
  Report Type: Spontaneous
  Country: US (occurrence: US)
  Receive Date: 20241125
  Receipt Date: 20241211
  Transmission Date: 20250114
  Serious: Yes (Other)
  Sender: SUNOVION
  Company Number: US-SUMITOMO PHARMA SWITZERLAND GMBH-2024SPA005378

PATIENT

DRUGS (3)
  1. GEMTESA [Suspect]
     Active Substance: VIBEGRON
     Indication: Stress urinary incontinence
     Dosage: 75 MG
     Route: 048
     Dates: end: 202411
  2. ELIQUIS [Concomitant]
     Active Substance: APIXABAN
     Indication: Anticoagulant therapy
     Route: 065
  3. METOPROLOL [Concomitant]
     Active Substance: METOPROLOL
     Route: 065

REACTIONS (2)
  - Delirium [Unknown]
  - Insomnia [Not Recovered/Not Resolved]
